FAERS Safety Report 9285855 (Version 2)
Quarter: 2013Q3

REPORT INFORMATION
  Report Type: Spontaneous
  Country: US (occurrence: US)
  Receive Date: 20130513
  Receipt Date: 20130918
  Transmission Date: 20140515
  Serious: Yes (Other)
  Sender: FDA-Public Use
  Company Number: US-PFIZER INC-2013146826

PATIENT
  Sex: Female

DRUGS (4)
  1. CHANTIX [Suspect]
     Indication: SMOKING CESSATION THERAPY
     Dosage: 0.5 MG, 1X/DAY
     Dates: start: 201304
  2. CHANTIX [Suspect]
     Dosage: UNK
  3. LYRICA [Suspect]
     Indication: DIABETIC NEUROPATHY
     Dosage: 275 MG, (100MG ONCE IN THE MORNING AND ONCE IN THE EVENING AND 75MG IN THE AFTERNOON)
     Route: 048
  4. NORCO [Concomitant]
     Indication: PAIN
     Dosage: UNK

REACTIONS (5)
  - Intervertebral disc disorder [Unknown]
  - Musculoskeletal disorder [Unknown]
  - Bone pain [Unknown]
  - Myalgia [Unknown]
  - Drug ineffective for unapproved indication [Unknown]
